FAERS Safety Report 17483904 (Version 3)
Quarter: 2020Q2

REPORT INFORMATION
  Report Type: Report from Study
  Country: US (occurrence: US)
  Receive Date: 20200302
  Receipt Date: 20200602
  Transmission Date: 20200713
  Serious: Yes (Other)
  Sender: FDA-Public Use
  Company Number: US-ACTELION-A-NJ2020-202619

PATIENT
  Age: 43 Year
  Sex: Female

DRUGS (3)
  1. OPSUMIT [Suspect]
     Active Substance: MACITENTAN
     Indication: PULMONARY ARTERIAL HYPERTENSION
     Dosage: UNK
     Route: 048
     Dates: start: 201906
  2. CEFTRIAXON [Concomitant]
     Active Substance: CEFTRIAXONE
     Dosage: UNK
     Dates: start: 20200304
  3. CIPROFLOXACIN. [Concomitant]
     Active Substance: CIPROFLOXACIN

REACTIONS (15)
  - Hepatic cirrhosis [Unknown]
  - Condition aggravated [Unknown]
  - Antinuclear antibody positive [Unknown]
  - Aspartate aminotransferase increased [Unknown]
  - Cholelithiasis [Unknown]
  - Liver disorder [Unknown]
  - Pulmonary arterial hypertension [Unknown]
  - Bilirubin conjugated increased [Unknown]
  - Alanine aminotransferase increased [Unknown]
  - Congestive hepatopathy [Unknown]
  - Blood bilirubin increased [Unknown]
  - Staphylococcus test positive [Recovered/Resolved]
  - Right ventricular failure [Unknown]
  - Urinary tract infection [Recovered/Resolved]
  - Body temperature [Recovered/Resolved]

NARRATIVE: CASE EVENT DATE: 20200214
